FAERS Safety Report 24556520 (Version 1)
Quarter: 2024Q4

REPORT INFORMATION
  Report Type: Spontaneous
  Country: US (occurrence: US)
  Receive Date: 20241028
  Receipt Date: 20241028
  Transmission Date: 20250114
  Serious: Yes (Other)
  Sender: BAYER HEALTHCARE PHARMACEUTICALS INC.
  Company Number: US-BAYER-2024A151392

PATIENT
  Age: 49 Year
  Sex: Female

DRUGS (1)
  1. MIRENA [Suspect]
     Active Substance: LEVONORGESTREL
     Indication: Breast cancer
     Dosage: 20?G/DAY
     Route: 015

REACTIONS (3)
  - Intraductal proliferative breast lesion [Recovering/Resolving]
  - Hormone receptor positive breast cancer [None]
  - Off label use [None]

NARRATIVE: CASE EVENT DATE: 20240201
